FAERS Safety Report 18696653 (Version 1)
Quarter: 2021Q1

REPORT INFORMATION
  Report Type: Other
  Country: US (occurrence: US)
  Receive Date: 20210104
  Receipt Date: 20210104
  Transmission Date: 20210419
  Serious: Yes (Life-Threatening, Other)
  Sender: FDA-Public Use
  Company Number: US-ROCHE-2701480

PATIENT
  Age: 48 Year
  Sex: Male

DRUGS (3)
  1. ACTILYSE [Suspect]
     Active Substance: ALTEPLASE
     Indication: HEMIPARESIS
     Route: 065
  2. ACTILYSE [Suspect]
     Active Substance: ALTEPLASE
     Indication: APHASIA
  3. ACTILYSE [Suspect]
     Active Substance: ALTEPLASE
     Indication: GAZE PALSY

REACTIONS (2)
  - Swollen tongue [Recovering/Resolving]
  - Angioedema [Recovering/Resolving]
